FAERS Safety Report 5165834-7 (Version None)
Quarter: 2006Q4

REPORT INFORMATION
  Report Type: 
  Country: None (occurrence: None)
  Receive Date: 20061128
  Receipt Date: 20061117
  Transmission Date: 20070319
  Serious: Yes (Disabling, Other)
  Sender: FDA-Public Use
  Company Number: 2006120790

PATIENT
  Sex: Male

DRUGS (1)
  1. NORVASC [Suspect]
     Dosage: 2.5 MG (2.5 MG, 1 IN 1 D)
     Dates: start: 20060501

REACTIONS (4)
  - DEAFNESS [None]
  - DISTURBANCE IN ATTENTION [None]
  - HEARING IMPAIRED [None]
  - TINNITUS [None]
